FAERS Safety Report 4296277-6 (Version None)
Quarter: 2004Q1

REPORT INFORMATION
  Report Type: 
  Country: None (occurrence: None)
  Receive Date: 20040213
  Receipt Date: 20040213
  Transmission Date: 20041129
  Serious: Yes (Hospitalization)
  Sender: FDA-Public Use
  Company Number: None

PATIENT
  Sex: Female
  Weight: 40.8237 kg

DRUGS (6)
  1. CIPRO [Suspect]
     Indication: URINARY TRACT INFECTION
     Dosage: PO
     Route: 048
     Dates: start: 20030630
  2. DEPAKOTE [Concomitant]
  3. PHENOBARBITAL TAB [Concomitant]
  4. ASPIRIN [Concomitant]
  5. LOPERAMIDE HCL [Concomitant]
  6. M.V.I. [Concomitant]

REACTIONS (2)
  - FLUSHING [None]
  - RASH ERYTHEMATOUS [None]
